FAERS Safety Report 8306384-6 (Version None)
Quarter: 2012Q2

REPORT INFORMATION
  Report Type: 
  Country: None (occurrence: None)
  Receive Date: 20120423
  Receipt Date: 20120415
  Transmission Date: 20120825
  Serious: Yes (Hospitalization)
  Sender: FDA-Public Use
  Company Number: IL-ELI_LILLY_AND_COMPANY-IL201204006937

PATIENT
  Sex: Male
  Weight: 105 kg

DRUGS (7)
  1. INSULIN [Concomitant]
  2. BYETTA [Suspect]
     Indication: DIABETES MELLITUS
     Dosage: 10 UG, BID
     Route: 058
     Dates: start: 20110414, end: 20120313
  3. CARDILOC [Concomitant]
  4. GLUCOPHAGE [Concomitant]
  5. PLAVIX [Concomitant]
  6. VASODIP [Concomitant]
  7. CADEX                                   /ISR/ [Concomitant]

REACTIONS (2)
  - CHOLECYSTECTOMY [None]
  - VOMITING [None]
